FAERS Safety Report 4714767-6 (Version None)
Quarter: 2005Q3

REPORT INFORMATION
  Report Type: 
  Country: None (occurrence: None)
  Receive Date: 20050713
  Receipt Date: 20050708
  Transmission Date: 20060218
  Serious: No
  Sender: FDA-Public Use
  Company Number: A500253101/AKO4824AE

PATIENT
  Age: 17 Year
  Sex: Male

DRUGS (4)
  1. DROPERIDOL [Suspect]
     Indication: MIGRAINE
     Dosage: INTRAVENOUS
     Route: 042
     Dates: start: 20050624, end: 20050624
  2. TOPAMAX [Concomitant]
  3. LAMICTAL [Concomitant]
  4. LEXAPRO [Concomitant]

REACTIONS (4)
  - ANXIETY [None]
  - DYSPNOEA [None]
  - EXTRAPYRAMIDAL DISORDER [None]
  - MUSCLE TWITCHING [None]
